FAERS Safety Report 9755823 (Version 1)
Quarter: 2013Q4

REPORT INFORMATION
  Report Type: Spontaneous
  Country: US (occurrence: US)
  Receive Date: 20131213
  Receipt Date: 20131213
  Transmission Date: 20140711
  Serious: No
  Sender: FDA-Public Use
  Company Number: US-GLAXOSMITHKLINE-A1024985A

PATIENT
  Age: 68 Year
  Sex: Male

DRUGS (1)
  1. NICODERM CQ CLEAR 14MG [Suspect]
     Indication: EX-TOBACCO USER
     Dosage: 14MG UNKNOWN
     Route: 065
     Dates: start: 20130519

REACTIONS (5)
  - Application site rash [Recovered/Resolved]
  - Application site swelling [Recovered/Resolved]
  - Application site erythema [Recovering/Resolving]
  - Application site reaction [Recovered/Resolved]
  - Application site warmth [Recovering/Resolving]
